FAERS Safety Report 11796856 (Version 2)
Quarter: 2015Q4

REPORT INFORMATION
  Report Type: Other
  Country: GB (occurrence: GB)
  Receive Date: 20151203
  Receipt Date: 20151223
  Transmission Date: 20160305
  Serious: Yes (Death)
  Sender: FDA-Public Use
  Company Number: GB-UNITED THERAPEUTICS-UNT-2015-014975

PATIENT
  Sex: Female
  Weight: 9.4 kg

DRUGS (1)
  1. REMODULIN [Suspect]
     Active Substance: TREPROSTINIL
     Indication: PRODUCT USED FOR UNKNOWN INDICATION
     Dosage: 0.0279 ?G/KG, CONTINUING
     Route: 058
     Dates: start: 20151006

REACTIONS (4)
  - Hypoxia [Fatal]
  - Fluid retention [Unknown]
  - Right ventricular failure [Fatal]
  - Infusion site reaction [Unknown]

NARRATIVE: CASE EVENT DATE: 201510
